FAERS Safety Report 24136757 (Version 1)
Quarter: 2024Q3

REPORT INFORMATION
  Report Type: Spontaneous
  Country: PL (occurrence: PL)
  Receive Date: 20240725
  Receipt Date: 20240725
  Transmission Date: 20241017
  Serious: Yes (Life-Threatening, Hospitalization, Other)
  Sender: PFIZER
  Company Number: PL-ORESUND-24OPAJY0378P

PATIENT
  Age: 27 Year
  Sex: Male

DRUGS (8)
  1. METHYLPREDNISOLONE SODIUM SUCCINATE [Suspect]
     Active Substance: METHYLPREDNISOLONE SODIUM SUCCINATE
     Indication: Still^s disease
     Dosage: 1100 MG, SINGLE DOSE
     Route: 042
  2. METHYLPREDNISOLONE SODIUM SUCCINATE [Suspect]
     Active Substance: METHYLPREDNISOLONE SODIUM SUCCINATE
     Indication: Lung disorder
     Dosage: HIGH DOSE (CUMULATIVE 3 G)
     Route: 042
  3. METHOTREXATE [Suspect]
     Active Substance: METHOTREXATE
     Indication: Still^s disease
     Dosage: 15 MG, WEEKLY
     Route: 048
  4. METHOTREXATE [Suspect]
     Active Substance: METHOTREXATE
     Indication: Lung disorder
  5. PREDNISOLONE [Suspect]
     Active Substance: PREDNISOLONE
     Indication: Still^s disease
     Dosage: 60 MG, 1X/DAY
     Route: 048
  6. PREDNISOLONE [Suspect]
     Active Substance: PREDNISOLONE
     Indication: Lung disorder
  7. ANAKINRA [Concomitant]
     Active Substance: ANAKINRA
     Indication: Still^s disease
     Dosage: 100 MG, 1X/DAY
     Route: 058
  8. ANAKINRA [Concomitant]
     Active Substance: ANAKINRA
     Indication: Lung disorder

REACTIONS (14)
  - Atrial flutter [Recovering/Resolving]
  - Pericardial effusion [Recovering/Resolving]
  - Ascites [Recovering/Resolving]
  - Global longitudinal strain abnormal [Recovering/Resolving]
  - Pleural effusion [Recovering/Resolving]
  - Splenomegaly [Recovering/Resolving]
  - Serum ferritin increased [Recovered/Resolved]
  - Pericardial fibrosis [Recovering/Resolving]
  - Pyrexia [Recovered/Resolved]
  - Hilar lymphadenopathy [Recovering/Resolving]
  - Condition aggravated [Recovering/Resolving]
  - Skin reaction [Recovered/Resolved]
  - Bradycardia [Recovering/Resolving]
  - Oropharyngeal pain [Recovered/Resolved]
